FAERS Safety Report 11805235 (Version 1)
Quarter: 2015Q4

REPORT INFORMATION
  Report Type: Spontaneous
  Country: US (occurrence: None)
  Receive Date: 20151204
  Receipt Date: 20151204
  Transmission Date: 20160305
  Serious: Yes (Disabling)
  Sender: FDA-Public Use
  Company Number: None

PATIENT
  Age: 56 Year
  Sex: Female
  Weight: 68.04 kg

DRUGS (6)
  1. DULOXETINE. [Suspect]
     Active Substance: DULOXETINE
     Indication: DEPRESSION
     Dates: start: 201412, end: 201412
  2. MULTI VITAMIN [Concomitant]
     Active Substance: VITAMINS
  3. BUPROPION. [Concomitant]
     Active Substance: BUPROPION
  4. CYMBALT [Concomitant]
  5. TRAZODONE [Concomitant]
     Active Substance: TRAZODONE HYDROCHLORIDE
  6. TOTAL HIP REPLACEMENT [Concomitant]

REACTIONS (6)
  - Panic attack [None]
  - Depression [None]
  - Product substitution issue [None]
  - Agitation [None]
  - Fear [None]
  - Anxiety [None]
